FAERS Safety Report 9855030 (Version 1)
Quarter: 2014Q1

REPORT INFORMATION
  Report Type: Spontaneous
  Country: US (occurrence: None)
  Receive Date: 20140127
  Receipt Date: 20140127
  Transmission Date: 20141002
  Serious: Yes (Death)
  Sender: FDA-Public Use
  Company Number: 2013AP010804

PATIENT
  Age: 71 Year
  Sex: Male

DRUGS (7)
  1. FERRIPROX (500 MG) [Suspect]
     Indication: HAEMOCHROMATOSIS
     Route: 048
     Dates: start: 20131112, end: 20131122
  2. ASPIRIN [Concomitant]
  3. ATENOLOL [Concomitant]
  4. LISINOPRIL [Concomitant]
  5. ALLOPURINOL [Concomitant]
  6. PMS-VALACYCLOVIR [Concomitant]
  7. BACTRIM DS [Concomitant]

REACTIONS (1)
  - Leukaemia [None]
